FAERS Safety Report 10299166 (Version 1)
Quarter: 2014Q3

REPORT INFORMATION
  Report Type: Spontaneous
  Country: US (occurrence: US)
  Receive Date: 20140711
  Receipt Date: 20140711
  Transmission Date: 20150326
  Serious: No
  Sender: FDA-Public Use
  Company Number: US-PFIZER INC-2014191244

PATIENT
  Age: 62 Year
  Sex: Male
  Weight: 95.2 kg

DRUGS (1)
  1. TESTOSTERONE CIPIONATE [Suspect]
     Active Substance: TESTOSTERONE
     Dosage: UNK
     Route: 030
     Dates: start: 2002

REACTIONS (2)
  - Abdominal discomfort [Unknown]
  - Mental disorder [Unknown]
